FAERS Safety Report 23790737 (Version 3)
Quarter: 2024Q2

REPORT INFORMATION
  Report Type: Spontaneous
  Country: IT (occurrence: IT)
  Receive Date: 20240427
  Receipt Date: 20240601
  Transmission Date: 20240716
  Serious: Yes (Death, Hospitalization, Other)
  Sender: FDA-Public Use
  Company Number: IT-ORG100013321-2024000414

PATIENT
  Age: 40 Year
  Sex: Male

DRUGS (15)
  1. CIPROFLOXACIN [Suspect]
     Active Substance: CIPROFLOXACIN
     Indication: Isosporiasis
     Dosage: UNK
     Route: 065
  2. VALGANCICLOVIR [Suspect]
     Active Substance: VALGANCICLOVIR
     Indication: Cytomegalovirus infection
     Dosage: UNK
     Route: 065
  3. METRONIDAZOLE [Suspect]
     Active Substance: METRONIDAZOLE
     Indication: Isosporiasis
     Dosage: UNK
     Route: 065
  4. EMTRICITABINE [Suspect]
     Active Substance: EMTRICITABINE
     Indication: Isosporiasis
     Dosage: UNK
     Route: 065
  5. EMTRICITABINE [Suspect]
     Active Substance: EMTRICITABINE
     Indication: HIV infection
  6. TENOFOVIR ALAFENAMIDE [Suspect]
     Active Substance: TENOFOVIR ALAFENAMIDE
     Indication: HIV infection
     Dosage: UNK
     Route: 065
  7. SULFAMETHOXAZOLE AND TRIMETHOPRIM [Suspect]
     Active Substance: SULFAMETHOXAZOLE\TRIMETHOPRIM
     Indication: Isosporiasis
     Dosage: 160/800G QID
     Route: 048
  8. SULFAMETHOXAZOLE AND TRIMETHOPRIM [Suspect]
     Active Substance: SULFAMETHOXAZOLE\TRIMETHOPRIM
     Indication: Prophylaxis
     Dosage: 160/800G TID
     Route: 048
  9. SULFAMETHOXAZOLE AND TRIMETHOPRIM [Suspect]
     Active Substance: SULFAMETHOXAZOLE\TRIMETHOPRIM
     Dosage: UNK
     Route: 042
  10. DOLUTEGRAVIR [Suspect]
     Active Substance: DOLUTEGRAVIR
     Indication: HIV infection
     Dosage: UNK
     Route: 065
  11. PENICILLIN G BENZATHINE [Suspect]
     Active Substance: PENICILLIN G BENZATHINE
     Indication: Syphilis
     Dosage: UNK
     Route: 065
  12. PYRIMETHAMINE [Suspect]
     Active Substance: PYRIMETHAMINE
     Indication: Isosporiasis
     Dosage: UNK
     Route: 065
  13. NITAZOXANIDE [Suspect]
     Active Substance: NITAZOXANIDE
     Indication: Isosporiasis
     Dosage: UNK
     Route: 065
  14. DOLUTEGRAVIR\EMTRICITABINE\TENOFOVIR ALAFENAMIDE [Suspect]
     Active Substance: DOLUTEGRAVIR\EMTRICITABINE\TENOFOVIR ALAFENAMIDE
     Indication: Cytomegalovirus infection
     Dosage: UNK
     Route: 065
  15. RALTEGRAVIR [Concomitant]
     Active Substance: RALTEGRAVIR
     Indication: Immune system disorder
     Dosage: UNK
     Route: 065

REACTIONS (5)
  - Acute kidney injury [Fatal]
  - Diarrhoea [Fatal]
  - Drug ineffective [Fatal]
  - Metabolic acidosis [Not Recovered/Not Resolved]
  - Product use in unapproved indication [Unknown]
